FAERS Safety Report 8078646-1 (Version None)
Quarter: 2012Q1

REPORT INFORMATION
  Report Type: 
  Country: None (occurrence: None)
  Receive Date: 20120124
  Receipt Date: 20120109
  Transmission Date: 20120608
  Serious: Yes (Hospitalization)
  Sender: FDA-Public Use
  Company Number: 2012MA000626

PATIENT
  Age: 16 Year
  Sex: Male

DRUGS (1)
  1. PAREGORIC LIQUIC USP (ALPHARMA) (PAREGORIC) [Suspect]
     Dosage: 3 GM; X1; PO
     Route: 048

REACTIONS (19)
  - PULMONARY HAEMORRHAGE [None]
  - HYPOTENSION [None]
  - WHITE BLOOD CELL COUNT INCREASED [None]
  - RESPIRATORY DISTRESS [None]
  - PNEUMONIA [None]
  - STRIDOR [None]
  - EPISTAXIS [None]
  - DRUG SCREEN POSITIVE [None]
  - TOXICITY TO VARIOUS AGENTS [None]
  - RESPIRATORY RATE DECREASED [None]
  - HEART RATE INCREASED [None]
  - PNEUMOMEDIASTINUM [None]
  - DYSPNOEA [None]
  - OVERDOSE [None]
  - BLOOD GLUCOSE DECREASED [None]
  - UNRESPONSIVE TO STIMULI [None]
  - PNEUMOTHORAX [None]
  - PLEURAL EFFUSION [None]
  - PULMONARY OEDEMA [None]
